FAERS Safety Report 19429641 (Version 1)
Quarter: 2021Q2

REPORT INFORMATION
  Report Type: Report from Study
  Country: US (occurrence: US)
  Receive Date: 20210617
  Receipt Date: 20210617
  Transmission Date: 20210717
  Serious: Yes (Hospitalization)
  Sender: FDA-Public Use
  Company Number: US-EISAI MEDICAL RESEARCH-EC-2021-094177

PATIENT
  Age: 71 Year
  Sex: Male
  Weight: 56.2 kg

DRUGS (4)
  1. DIPHENOXYLATE? ATROPINE [Concomitant]
  2. VITAMIN D3 [Concomitant]
     Active Substance: CHOLECALCIFEROL
  3. LENVIMA [Suspect]
     Active Substance: LENVATINIB
     Indication: HEPATIC CANCER
     Route: 048
     Dates: start: 20210528, end: 202106
  4. ASPIRIN. [Concomitant]
     Active Substance: ASPIRIN

REACTIONS (3)
  - Diarrhoea [Unknown]
  - Dysphonia [Unknown]
  - Dehydration [Unknown]

NARRATIVE: CASE EVENT DATE: 202106
